FAERS Safety Report 6412396-X (Version None)
Quarter: 2009Q4

REPORT INFORMATION
  Report Type: 
  Country: None (occurrence: None)
  Receive Date: 20091023
  Receipt Date: 20091016
  Transmission Date: 20100525
  Serious: Yes (Hospitalization)
  Sender: FDA-Public Use
  Company Number: GB-NOVOPROD-292873

PATIENT
  Sex: Male

DRUGS (3)
  1. NOVOMIX 30 [Suspect]
     Indication: TYPE 2 DIABETES MELLITUS
     Dosage: 17 IU, QD
     Dates: start: 20070101
  2. NOVOMIX 30 [Suspect]
     Dosage: 40 IU, QD
  3. NOVOMIX 30 [Suspect]
     Dosage: UNK IU, QD

REACTIONS (3)
  - ENCEPHALITIS VIRAL [None]
  - HYPERGLYCAEMIA [None]
  - HYPOGLYCAEMIA [None]
